FAERS Safety Report 9177839 (Version 4)
Quarter: 2013Q2

REPORT INFORMATION
  Report Type: Spontaneous
  Country: US (occurrence: US)
  Receive Date: 20121010
  Receipt Date: 20130411
  Transmission Date: 20140414
  Serious: Yes (Other)
  Sender: FDA-Public Use
  Company Number: US-RB-036762-12

PATIENT
  Age: 23 Year
  Sex: Female

DRUGS (8)
  1. SUBOXONE FILM [Suspect]
     Indication: DRUG DEPENDENCE
     Dosage: SUBOXONE FILM
     Route: 060
     Dates: start: 201112, end: 201206
  2. SUBOXONE TABLET [Suspect]
     Indication: DRUG DEPENDENCE
     Route: 060
     Dates: start: 201112, end: 201206
  3. DILAUDID [Suspect]
     Indication: BACK PAIN
     Dosage: ^A LOT 3 TIMES DAILY^
     Route: 048
     Dates: start: 201206
  4. XANAX [Suspect]
     Indication: DRUG DEPENDENCE
     Dosage: UNKNOWN DAILY DOSAGE
     Route: 048
     Dates: end: 201206
  5. XANAX [Suspect]
     Indication: ANXIETY
     Dosage: DOSING DETAILS UNSPECIFIED
     Route: 055
     Dates: start: 201206
  6. OXYCONTIN [Suspect]
     Indication: DRUG DEPENDENCE
     Dosage: DOSING DETAILS UNSPECIFIED
     Route: 048
     Dates: start: 201206
  7. NICOTINE [Suspect]
     Indication: TOBACCO USER
     Dosage: SMOKES 1 PACK DAILY
     Route: 055
  8. MARIJUANA [Suspect]
     Indication: PRODUCT USED FOR UNKNOWN INDICATION
     Dosage: OCCASIONAL USE
     Route: 055

REACTIONS (8)
  - Premature delivery [Recovered/Resolved]
  - Oligohydramnios [Recovered/Resolved]
  - Substance abuse [Recovered/Resolved]
  - Dehydration [Recovered/Resolved]
  - Dependence [Recovered/Resolved]
  - Back pain [Recovered/Resolved]
  - Nausea [Not Recovered/Not Resolved]
  - Exposure during pregnancy [Recovered/Resolved]
